FAERS Safety Report 4631371-9 (Version None)
Quarter: 2005Q2

REPORT INFORMATION
  Report Type: 
  Country: None (occurrence: None)
  Receive Date: 20050407
  Receipt Date: 20050322
  Transmission Date: 20051028
  Serious: Yes (Death)
  Sender: FDA-Public Use
  Company Number: 1771

PATIENT
  Sex: Female

DRUGS (1)
  1. AVINZA [Suspect]

REACTIONS (1)
  - RENAL FAILURE [None]
